FAERS Safety Report 22142349 (Version 4)
Quarter: 2025Q3

REPORT INFORMATION
  Report Type: Report from Study
  Country: CA (occurrence: CA)
  Receive Date: 20230327
  Receipt Date: 20250911
  Transmission Date: 20251021
  Serious: Yes (Other)
  Sender: TAKEDA
  Company Number: CA-TAKEDA-2023TUS029919

PATIENT
  Sex: Male

DRUGS (2)
  1. VEDOLIZUMAB [Suspect]
     Active Substance: VEDOLIZUMAB
     Indication: Crohn^s disease
  2. VEDOLIZUMAB [Suspect]
     Active Substance: VEDOLIZUMAB
     Indication: Crohn^s disease
     Dosage: 108 MILLIGRAM, Q2WEEKS
     Dates: start: 20250527

REACTIONS (9)
  - Haemorrhage [Unknown]
  - Therapeutic reaction time decreased [Unknown]
  - Diarrhoea [Unknown]
  - Abdominal mass [Unknown]
  - Soft tissue inflammation [Unknown]
  - Mouth ulceration [Unknown]
  - Aphthous ulcer [Unknown]
  - Abdominal distension [Unknown]
  - Arthralgia [Unknown]
